FAERS Safety Report 24848716 (Version 4)
Quarter: 2025Q1

REPORT INFORMATION
  Report Type: Spontaneous
  Country: US (occurrence: US)
  Receive Date: 20250116
  Receipt Date: 20250120
  Transmission Date: 20250409
  Serious: Yes (Life-Threatening, Hospitalization, Other)
  Sender: ROCHE
  Company Number: US-ROCHE-10000180336

PATIENT
  Age: 22 Year
  Sex: Female

DRUGS (1)
  1. RITUXIMAB [Suspect]
     Active Substance: RITUXIMAB
     Indication: Granulomatosis with polyangiitis
     Route: 065

REACTIONS (5)
  - Ureaplasma infection [Recovering/Resolving]
  - Hyperammonaemia [Recovering/Resolving]
  - Polyarthritis [Recovering/Resolving]
  - Shock [Recovering/Resolving]
  - Urinary tract infection [Unknown]
